FAERS Safety Report 23815621 (Version 2)
Quarter: 2024Q2

REPORT INFORMATION
  Report Type: Spontaneous
  Country: CA (occurrence: None)
  Receive Date: 20240503
  Receipt Date: 20240528
  Transmission Date: 20240716
  Serious: Yes (Other)
  Sender: FDA-Public Use
  Company Number: 2024A100959

PATIENT
  Sex: Male

DRUGS (2)
  1. DURVALUMAB [Suspect]
     Active Substance: DURVALUMAB
  2. TREMELIMUMAB [Suspect]
     Active Substance: TREMELIMUMAB
     Route: 042

REACTIONS (1)
  - Myocardial infarction [Recovered/Resolved]
